FAERS Safety Report 9783210 (Version 2)
Quarter: 2014Q1

REPORT INFORMATION
  Report Type: Spontaneous
  Country: FR (occurrence: FR)
  Receive Date: 20131226
  Receipt Date: 20140109
  Transmission Date: 20141002
  Serious: Yes (Other)
  Sender: FDA-Public Use
  Company Number: FR-TEVA-452043ISR

PATIENT
  Age: 36 Year
  Sex: Male

DRUGS (4)
  1. TRAMADOL [Suspect]
     Indication: OVERDOSE
     Dosage: MASSIVE AMOUNT
     Route: 048
  2. TRANEXAMIC ACID [Concomitant]
     Route: 065
  3. MONTELUKAST [Concomitant]
     Route: 065
  4. DOMPERIDONE [Concomitant]
     Route: 065

REACTIONS (3)
  - Overdose [Unknown]
  - Hypoglycaemia [Unknown]
  - Convulsion [Unknown]
